FAERS Safety Report 4531396-8 (Version None)
Quarter: 2004Q4

REPORT INFORMATION
  Report Type: 
  Country: None (occurrence: None)
  Receive Date: 20041216
  Receipt Date: 20041129
  Transmission Date: 20050328
  Serious: Yes (Hospitalization, Other)
  Sender: FDA-Public Use
  Company Number: USA040874726

PATIENT
  Age: 76 Year
  Sex: Female
  Weight: 50 kg

DRUGS (5)
  1. FORTEO [Suspect]
     Indication: OSTEOPOROSIS
     Dosage: 20 UG/1 DAY
     Dates: start: 20040501
  2. PACERONE [Concomitant]
  3. ZYRTEC [Concomitant]
  4. MULTIVITAMIN [Concomitant]
  5. CALCIUM AND VITAMIN D [Concomitant]

REACTIONS (11)
  - DEVICE FAILURE [None]
  - FALL [None]
  - HIP FRACTURE [None]
  - IMPAIRED HEALING [None]
  - INJECTION SITE BURNING [None]
  - INJECTION SITE HAEMORRHAGE [None]
  - INJECTION SITE PAIN [None]
  - PAIN [None]
  - SKIN DISCOLOURATION [None]
  - SWELLING [None]
  - WEIGHT INCREASED [None]
